FAERS Safety Report 5619253-7 (Version None)
Quarter: 2008Q1

REPORT INFORMATION
  Report Type: 
  Country: None (occurrence: None)
  Receive Date: 20080205
  Receipt Date: 20080130
  Transmission Date: 20080703
  Serious: Yes (Other)
  Sender: FDA-Public Use
  Company Number: E2020-02206-SPO-JP

PATIENT
  Age: 81 Year
  Sex: Male

DRUGS (4)
  1. ARICEPT [Suspect]
     Indication: DEMENTIA ALZHEIMER'S TYPE
     Dosage: 5 MG, 1 IN 1 D, ORAL, 10 MG, 1 IN 1 D, ORAL
     Route: 048
     Dates: start: 20071003, end: 20080128
  2. ARICEPT [Suspect]
     Indication: DEMENTIA ALZHEIMER'S TYPE
     Dosage: 5 MG, 1 IN 1 D, ORAL, 10 MG, 1 IN 1 D, ORAL
     Route: 048
     Dates: start: 20020301
  3. TAMSULOSIN HCL [Suspect]
     Indication: BENIGN PROSTATIC HYPERPLASIA
     Dosage: 0.2  MG, 1 IN 1 D, ORAL
     Route: 048
     Dates: start: 20050401, end: 20080129
  4. SERMION (NICERGOLINE) [Concomitant]

REACTIONS (8)
  - ARRHYTHMIA [None]
  - BRADYCARDIA [None]
  - DEMENTIA [None]
  - DISEASE PROGRESSION [None]
  - HEART RATE ABNORMAL [None]
  - HYPERHIDROSIS [None]
  - HYPOREFLEXIA [None]
  - HYPOTENSION [None]
